FAERS Safety Report 24993546 (Version 2)
Quarter: 2025Q1

REPORT INFORMATION
  Report Type: Spontaneous
  Country: US (occurrence: US)
  Receive Date: 20250221
  Receipt Date: 20250305
  Transmission Date: 20250408
  Serious: No
  Sender: AMGEN
  Company Number: US-AMGEN-USASP2025031663

PATIENT
  Age: 67 Year
  Sex: Female

DRUGS (2)
  1. REPATHA [Suspect]
     Active Substance: EVOLOCUMAB
     Indication: Hypercholesterolaemia
     Dosage: 140 MILLIGRAM/ML, Q2WK (EVERY 15 DAYS)
     Route: 058
  2. REPATHA [Suspect]
     Active Substance: EVOLOCUMAB
     Dosage: 140 MILLIGRAM/ML, Q2WK (EVERY 15 DAYS)
     Route: 058

REACTIONS (6)
  - Device difficult to use [Unknown]
  - Multiple use of single-use product [Unknown]
  - Drug dose omission by device [Unknown]
  - Product administration error [Unknown]
  - Blood cholesterol increased [Unknown]
  - Injection site pain [Unknown]

NARRATIVE: CASE EVENT DATE: 20250130
